FAERS Safety Report 4864819-5 (Version None)
Quarter: 2005Q4

REPORT INFORMATION
  Report Type: 
  Country: None (occurrence: None)
  Receive Date: 20051222
  Receipt Date: 20050926
  Transmission Date: 20060501
  Serious: Yes (Hospitalization, Other)
  Sender: FDA-Public Use
  Company Number: US-MERCK-0509USA03754

PATIENT
  Age: 79 Year
  Sex: Female

DRUGS (6)
  1. VIOXX [Suspect]
     Route: 048
     Dates: end: 20020301
  2. MEVACOR [Concomitant]
     Route: 048
  3. LASIX [Concomitant]
     Route: 065
  4. ZESTRIL [Concomitant]
     Route: 065
  5. ALLOPURINOL [Concomitant]
     Route: 065
  6. CARDURA [Concomitant]
     Route: 065

REACTIONS (4)
  - BLOOD CALCIUM DECREASED [None]
  - CARDIAC DISORDER [None]
  - FUNGAL INFECTION [None]
  - GOITRE [None]
